FAERS Safety Report 6959643-3 (Version None)
Quarter: 2010Q3

REPORT INFORMATION
  Report Type: 
  Country: None (occurrence: None)
  Receive Date: 20100827
  Receipt Date: 20100814
  Transmission Date: 20110219
  Serious: Yes (Other)
  Sender: FDA-Public Use
  Company Number: THQ2010A02268

PATIENT
  Sex: Female

DRUGS (1)
  1. ZACTOS (PIOGLITAZONE HYDROCHLORIDE) [Suspect]
     Indication: TYPE 2 DIABETES MELLITUS

REACTIONS (1)
  - PERICARDIAL EFFUSION [None]
